FAERS Safety Report 20416344 (Version 1)
Quarter: 2022Q1

REPORT INFORMATION
  Report Type: Spontaneous
  Country: US (occurrence: None)
  Receive Date: 20220202
  Receipt Date: 20220202
  Transmission Date: 20220423
  Serious: Yes (Hospitalization)
  Sender: FDA-Public Use
  Company Number: None

PATIENT
  Age: 22 Year
  Sex: Male
  Weight: 130 kg

DRUGS (5)
  1. CYTARABINE [Suspect]
     Active Substance: CYTARABINE
     Indication: Product used for unknown indication
     Dates: end: 20211228
  2. DAUNORUBICIN [Concomitant]
     Dates: end: 20220118
  3. DEXAMETHASONE [Concomitant]
     Active Substance: DEXAMETHASONE
     Dates: end: 20220103
  4. ONCASPAR [Concomitant]
     Active Substance: PEGASPARGASE
     Dates: end: 20211231
  5. VINCRISTINE SULFATE [Concomitant]
     Active Substance: VINCRISTINE SULFATE
     Dates: end: 20220118

REACTIONS (3)
  - COVID-19 [None]
  - Febrile neutropenia [None]
  - Therapy interrupted [None]

NARRATIVE: CASE EVENT DATE: 20220122
